FAERS Safety Report 22676157 (Version 3)
Quarter: 2023Q4

REPORT INFORMATION
  Report Type: Spontaneous
  Country: BR (occurrence: BR)
  Receive Date: 20230706
  Receipt Date: 20231125
  Transmission Date: 20240110
  Serious: Yes (Other)
  Sender: FDA-Public Use
  Company Number: BR-002147023-NVSC2023BR150015

PATIENT
  Sex: Female

DRUGS (1)
  1. TEGRETOL [Suspect]
     Active Substance: CARBAMAZEPINE
     Indication: Seizure
     Dosage: 200 MG, 60 TABLETS, 4 A DAY EVERY 8 HOURS
     Route: 065

REACTIONS (8)
  - Brain neoplasm [Unknown]
  - Seizure [Unknown]
  - Feeling abnormal [Not Recovered/Not Resolved]
  - Panic disorder [Unknown]
  - Somnolence [Unknown]
  - Dizziness [Unknown]
  - Depression [Unknown]
  - Product quality issue [Not Recovered/Not Resolved]

NARRATIVE: CASE EVENT DATE: 20100101
